FAERS Safety Report 5250689-2 (Version None)
Quarter: 2007Q1

REPORT INFORMATION
  Report Type: 
  Country: None (occurrence: None)
  Receive Date: 20070228
  Receipt Date: 20060706
  Transmission Date: 20070707
  Serious: Yes (Other)
  Sender: FDA-Public Use
  Company Number: US-GLAXOSMITHKLINE-A0609573A

PATIENT
  Age: 22 Year
  Sex: Female

DRUGS (4)
  1. LAMICTAL [Suspect]
     Indication: BIPOLAR DISORDER
     Dosage: 200MG PER DAY
     Route: 048
     Dates: start: 20050902
  2. WELLBUTRIN [Suspect]
     Dosage: 300MG PER DAY
     Route: 048
     Dates: start: 20060505, end: 20060520
  3. ZOLOFT [Concomitant]
     Dosage: 100MG PER DAY
     Route: 048
  4. ROZEREM [Concomitant]
     Dosage: 8MG AS REQUIRED
     Route: 048

REACTIONS (4)
  - CONVULSION [None]
  - FACIAL SPASM [None]
  - MUSCULOSKELETAL STIFFNESS [None]
  - RASH [None]
